FAERS Safety Report 24548532 (Version 1)
Quarter: 2024Q4

REPORT INFORMATION
  Report Type: Spontaneous
  Country: IL (occurrence: IL)
  Receive Date: 20241025
  Receipt Date: 20241025
  Transmission Date: 20250115
  Serious: Yes (Other)
  Sender: Y-MABS THERAPEUTICS
  Company Number: IL-Y-MABS THERAPEUTICS, INC.-EAP2021-IL-000511

PATIENT
  Sex: Female

DRUGS (4)
  1. DANYELZA [Suspect]
     Active Substance: NAXITAMAB-GQGK
     Indication: Neuroblastoma recurrent
     Dosage: 2.25 MILLIGRAM/KILOGRAM, 1 CYCLE, 1 DOSE
     Route: 042
     Dates: start: 202110
  2. DANYELZA [Suspect]
     Active Substance: NAXITAMAB-GQGK
     Dosage: 2.25 MILLIGRAM/KILOGRAM, CYCLE 1, DOSE 2
     Dates: start: 202110
  3. DANYELZA [Suspect]
     Active Substance: NAXITAMAB-GQGK
     Dosage: 2.25 MILLIGRAM/KILOGRAM, CYCLE 1, DOSE 3
     Dates: start: 202110
  4. DANYELZA [Suspect]
     Active Substance: NAXITAMAB-GQGK
     Dosage: 2.25 MILLIGRAM/KILOGRAM, CYCLE UNK, DOSE UNK, 4TH TREATMENT
     Dates: start: 202110

REACTIONS (9)
  - Urticaria [Unknown]
  - Rash [Recovered/Resolved]
  - Blood pressure decreased [Recovered/Resolved]
  - Rash [Recovered/Resolved]
  - Blood pressure decreased [Recovered/Resolved]
  - Oxygen saturation decreased [Unknown]
  - Abdominal pain [Unknown]
  - Amylase increased [Unknown]
  - Blood pressure decreased [Unknown]

NARRATIVE: CASE EVENT DATE: 20211001
